FAERS Safety Report 8558759-8 (Version None)
Quarter: 2012Q3

REPORT INFORMATION
  Report Type: 
  Country: None (occurrence: None)
  Receive Date: 20120801
  Receipt Date: 20120717
  Transmission Date: 20120928
  Serious: Yes (Death, Hospitalization, Other)
  Sender: FDA-Public Use
  Company Number: GR-009507513-1207GRC006940

PATIENT

DRUGS (2)
  1. PEG-INTRON [Suspect]
     Indication: HEPATITIS C
     Dosage: 150 UNK, UNK
     Dates: start: 20110920, end: 20120703
  2. REBETOL [Suspect]
     Indication: HEPATITIS C
     Dosage: 1200 MG, UNK
     Dates: start: 20110920, end: 20120703

REACTIONS (6)
  - DYSPNOEA [None]
  - PYREXIA [None]
  - FATIGUE [None]
  - PULMONARY EMBOLISM [None]
  - CARDIAC DISORDER [None]
  - PLEURAL EFFUSION [None]
